FAERS Safety Report 17130599 (Version 1)
Quarter: 2019Q4

REPORT INFORMATION
  Report Type: Spontaneous
  Country: RO (occurrence: RO)
  Receive Date: 20191209
  Receipt Date: 20191209
  Transmission Date: 20200122
  Serious: Yes (Other)
  Sender: FDA-Public Use
  Company Number: RO-MYLANLABS-2019M1119955

PATIENT
  Age: 24 Year
  Sex: Male

DRUGS (1)
  1. OLANZAPINE. [Suspect]
     Active Substance: OLANZAPINE
     Indication: PRODUCT USED FOR UNKNOWN INDICATION
     Dosage: 10 MILLIGRAM (2 YEARS EARLIER)
     Route: 065

REACTIONS (9)
  - Drug ineffective [Unknown]
  - Delusion [Not Recovered/Not Resolved]
  - Anxiety [Recovering/Resolving]
  - Poverty of thought content [Not Recovered/Not Resolved]
  - Obsessive thoughts [Recovering/Resolving]
  - Aggression [Not Recovered/Not Resolved]
  - Schizophrenia [Not Recovered/Not Resolved]
  - Social avoidant behaviour [Not Recovered/Not Resolved]
  - Abulia [Not Recovered/Not Resolved]
